FAERS Safety Report 13840195 (Version 1)
Quarter: 2017Q3

REPORT INFORMATION
  Report Type: Spontaneous
  Country: US (occurrence: US)
  Receive Date: 20170807
  Receipt Date: 20170807
  Transmission Date: 20171127
  Serious: Yes (Other)
  Sender: FDA-Public Use
  Company Number: None

PATIENT
  Age: 75 Year
  Sex: Female
  Weight: 48.9 kg

DRUGS (1)
  1. RITUXIMAB. [Suspect]
     Active Substance: RITUXIMAB
     Indication: MYASTHENIA GRAVIS
     Dosage: ?          OTHER FREQUENCY:ONCE;OTHER ROUTE:ONCE?
     Dates: start: 20170806, end: 20170806

REACTIONS (1)
  - Pruritus [None]

NARRATIVE: CASE EVENT DATE: 20170806
